FAERS Safety Report 21503006 (Version 2)
Quarter: 2022Q4

REPORT INFORMATION
  Report Type: Spontaneous
  Country: GB (occurrence: GB)
  Receive Date: 20221025
  Receipt Date: 20221121
  Transmission Date: 20230113
  Serious: No
  Sender: FDA-Public Use
  Company Number: GB-PFIZER INC-202200386834

PATIENT
  Age: 23 Year
  Sex: Female

DRUGS (1)
  1. GENOTROPIN [Suspect]
     Active Substance: SOMATROPIN
     Indication: Growth hormone deficiency
     Dosage: 2 MG, DAILY
     Route: 058

REACTIONS (2)
  - Device malfunction [Unknown]
  - Incorrect dose administered by device [Unknown]
